FAERS Safety Report 8808713 (Version 3)
Quarter: 2015Q2

REPORT INFORMATION
  Report Type: Spontaneous
  Country: US (occurrence: US)
  Receive Date: 20120926
  Receipt Date: 20150525
  Transmission Date: 20150821
  Serious: Yes (Other)
  Sender: FDA-Public Use
  Company Number: US-JNJFOC-20120908260

PATIENT
  Age: 65 Year
  Sex: Female
  Weight: 74.84 kg

DRUGS (5)
  1. SOLU-MEDROL [Suspect]
     Active Substance: METHYLPREDNISOLONE SODIUM SUCCINATE
     Indication: PRODUCT USED FOR UNKNOWN INDICATION
     Route: 065
     Dates: start: 20120907
  2. REMICADE [Suspect]
     Active Substance: INFLIXIMAB
     Indication: RHEUMATOID ARTHRITIS
     Route: 042
     Dates: start: 20120906
  3. INSULIN [Concomitant]
     Active Substance: INSULIN NOS
     Indication: DIABETES MELLITUS
     Route: 065
  4. SYNTHROID [Concomitant]
     Active Substance: LEVOTHYROXINE SODIUM
     Indication: THYROID DISORDER
     Route: 065
  5. PILOCARPINE [Concomitant]
     Active Substance: PILOCARPINE
     Indication: SALIVARY HYPERSECRETION
     Route: 065

REACTIONS (10)
  - Dyspnoea [Unknown]
  - Asthenia [Unknown]
  - Decreased appetite [Not Recovered/Not Resolved]
  - Chills [Unknown]
  - Abnormal loss of weight [Not Recovered/Not Resolved]
  - Heart rate increased [Unknown]
  - Chest discomfort [Unknown]
  - Nausea [Unknown]
  - Palpitations [Unknown]
  - Pyrexia [Unknown]

NARRATIVE: CASE EVENT DATE: 201209
